FAERS Safety Report 4898014-0 (Version None)
Quarter: 2006Q1

REPORT INFORMATION
  Report Type: 
  Country: None (occurrence: None)
  Receive Date: 20060201
  Receipt Date: 20060123
  Transmission Date: 20060701
  Serious: Yes (Hospitalization)
  Sender: FDA-Public Use
  Company Number: AU-ROCHE-433195

PATIENT
  Age: 48 Year
  Sex: Male

DRUGS (4)
  1. CEFTRIAXONE SODIUM [Suspect]
     Indication: ACUTE TONSILLITIS
     Route: 042
     Dates: start: 20040710, end: 20040712
  2. PENICILLIN [Suspect]
     Indication: ACUTE TONSILLITIS
     Route: 048
     Dates: start: 20040706, end: 20040710
  3. COLCHICINE [Concomitant]
     Indication: GOUT
     Dosage: START DATE REPORTED AS LONG TERM.
     Route: 048
  4. DICLOFENAC SODIUM [Concomitant]
     Indication: GOUT

REACTIONS (3)
  - LEUKOCYTOCLASTIC VASCULITIS [None]
  - RASH PRURITIC [None]
  - SWELLING FACE [None]
